FAERS Safety Report 8073686-0 (Version None)
Quarter: 2012Q1

REPORT INFORMATION
  Report Type: 
  Country: None (occurrence: None)
  Receive Date: 20120126
  Receipt Date: 20120119
  Transmission Date: 20120608
  Serious: Yes (Other)
  Sender: FDA-Public Use
  Company Number: JP-PFIZER INC-2010158062

PATIENT
  Age: 64 Year
  Sex: Male
  Weight: 76.6 kg

DRUGS (6)
  1. SOMATROPIN [Suspect]
     Indication: HYPOPITUITARISM
     Dosage: 1.4 MG, WEEKLY
     Route: 058
     Dates: start: 20081001
  2. CORTRIL [Concomitant]
     Dosage: UNK
     Route: 048
     Dates: start: 20010401
  3. TESTOSTERONE ENANTATE [Concomitant]
     Dosage: UNK
     Route: 030
     Dates: start: 20060203
  4. DIOVAN [Concomitant]
     Dosage: UNK
     Route: 048
     Dates: start: 20030319
  5. NORVASC [Concomitant]
     Dosage: UNK
     Route: 048
     Dates: start: 20030917
  6. LEVOTHYROXINE SODIUM [Concomitant]
     Dosage: UNK
     Route: 048
     Dates: start: 20010401

REACTIONS (1)
  - PITUITARY TUMOUR BENIGN [None]
